FAERS Safety Report 25454078 (Version 1)
Quarter: 2025Q2

REPORT INFORMATION
  Report Type: Report from Study
  Country: CA (occurrence: CA)
  Receive Date: 20250619
  Receipt Date: 20250619
  Transmission Date: 20250716
  Serious: Yes (Other)
  Sender: JOHNSON AND JOHNSON
  Company Number: CA-JNJFOC-20250620897

PATIENT
  Age: 14 Year
  Sex: Male

DRUGS (1)
  1. REMICADE [Suspect]
     Active Substance: INFLIXIMAB
     Indication: Crohn^s disease
     Route: 041
     Dates: start: 20241230

REACTIONS (5)
  - Syncope [Recovered/Resolved]
  - Dehydration [Unknown]
  - Face injury [Unknown]
  - Tongue injury [Unknown]
  - Fall [Unknown]

NARRATIVE: CASE EVENT DATE: 20250501
